FAERS Safety Report 4672635-2 (Version None)
Quarter: 2005Q2

REPORT INFORMATION
  Report Type: 
  Country: None (occurrence: None)
  Receive Date: 20050524
  Receipt Date: 20050512
  Transmission Date: 20051028
  Serious: Yes (Hospitalization)
  Sender: FDA-Public Use
  Company Number: 200513902GDDC

PATIENT
  Age: 65 Year
  Sex: Female

DRUGS (4)
  1. NICODERM [Suspect]
     Route: 062
     Dates: start: 20050216, end: 20050312
  2. ANALGESICS (UNKNOWN TYPE) [Concomitant]
     Indication: PAIN
  3. HEART MEDICATION [Concomitant]
  4. ACETYLSALICYLIC ACID [Concomitant]

REACTIONS (3)
  - DEPRESSION [None]
  - LUNG NEOPLASM MALIGNANT [None]
  - STRESS [None]
